FAERS Safety Report 21901478 (Version 1)
Quarter: 2023Q1

REPORT INFORMATION
  Report Type: Spontaneous
  Country: IT (occurrence: None)
  Receive Date: 20230123
  Receipt Date: 20230123
  Transmission Date: 20230417
  Serious: Yes (Other)
  Sender: FDA-Public Use
  Company Number: IT-Unichem Pharmaceuticals (USA) Inc-UCM202301-000074

PATIENT
  Age: 17 Year
  Sex: Female

DRUGS (3)
  1. DIVALPROEX SODIUM [Suspect]
     Active Substance: DIVALPROEX SODIUM
     Indication: Epilepsy
  2. LACOSAMIDE [Suspect]
     Active Substance: LACOSAMIDE
     Indication: Epilepsy
  3. LACOSAMIDE [Suspect]
     Active Substance: LACOSAMIDE
     Dosage: SLOWLY REDUCED

REACTIONS (3)
  - Drug interaction [Unknown]
  - Encephalopathy [Recovering/Resolving]
  - Toxicity to various agents [Unknown]
